FAERS Safety Report 24375656 (Version 1)
Quarter: 2024Q3

REPORT INFORMATION
  Report Type: Spontaneous
  Country: BR (occurrence: BR)
  Receive Date: 20240928
  Receipt Date: 20240928
  Transmission Date: 20241017
  Serious: Yes (Other)
  Sender: JOHNSON AND JOHNSON
  Company Number: BR-JNJFOC-20240967103

PATIENT
  Age: 65 Year
  Sex: Male
  Weight: 64 kg

DRUGS (4)
  1. GOLIMUMAB [Suspect]
     Active Substance: GOLIMUMAB
     Indication: Rheumatoid arthritis
     Route: 058
  2. GOLIMUMAB [Suspect]
     Active Substance: GOLIMUMAB
     Indication: Osteoarthritis
  3. GOLIMUMAB [Suspect]
     Active Substance: GOLIMUMAB
     Indication: Rheumatic disorder
  4. GOLIMUMAB [Suspect]
     Active Substance: GOLIMUMAB
     Indication: Arthritis

REACTIONS (3)
  - Pneumonia [Unknown]
  - Gout [Unknown]
  - Head discomfort [Unknown]

NARRATIVE: CASE EVENT DATE: 20240801
